FAERS Safety Report 11743343 (Version 1)
Quarter: 2015Q4

REPORT INFORMATION
  Report Type: Spontaneous
  Country: US (occurrence: US)
  Receive Date: 20151116
  Receipt Date: 20151116
  Transmission Date: 20160304
  Serious: No
  Sender: FDA-Public Use
  Company Number: US-BAYER-2015-468944

PATIENT
  Age: 73 Year
  Sex: Female
  Weight: 74.83 kg

DRUGS (1)
  1. CLARITIN [Suspect]
     Active Substance: LORATADINE
     Indication: MULTIPLE ALLERGIES
     Dosage: 2 DF, QD
     Route: 048

REACTIONS (1)
  - Product use issue [Recovered/Resolved]

NARRATIVE: CASE EVENT DATE: 20151111
